FAERS Safety Report 7955790-8 (Version None)
Quarter: 2011Q4

REPORT INFORMATION
  Report Type: 
  Country: None (occurrence: None)
  Receive Date: 20111205
  Receipt Date: 20111123
  Transmission Date: 20120403
  Serious: Yes (Hospitalization)
  Sender: FDA-Public Use
  Company Number: US-BIOGENIDEC-2011BI002738

PATIENT
  Sex: Female

DRUGS (1)
  1. TYSABRI [Suspect]
     Indication: MULTIPLE SCLEROSIS
     Route: 042
     Dates: start: 20081007

REACTIONS (9)
  - COORDINATION ABNORMAL [None]
  - DEPRESSION [None]
  - PERIORBITAL HAEMATOMA [None]
  - DRUG INEFFECTIVE [None]
  - PAIN IN EXTREMITY [None]
  - FALL [None]
  - SKULL FRACTURE [None]
  - SCAPULA FRACTURE [None]
  - CONCUSSION [None]
